FAERS Safety Report 23279455 (Version 3)
Quarter: 2024Q3

REPORT INFORMATION
  Report Type: Spontaneous
  Country: US (occurrence: US)
  Receive Date: 20231209
  Receipt Date: 20240710
  Transmission Date: 20241017
  Serious: No
  Sender: BRISTOL MYERS SQUIBB
  Company Number: US-BRISTOL-MYERS SQUIBB COMPANY-2023-178368

PATIENT
  Age: 23 Year
  Sex: Male

DRUGS (1)
  1. SOTYKTU [Suspect]
     Active Substance: DEUCRAVACITINIB
     Indication: Psoriasis
     Route: 048

REACTIONS (3)
  - Drug ineffective [Unknown]
  - Product dose omission in error [Unknown]
  - Loss of therapeutic response [Not Recovered/Not Resolved]

NARRATIVE: CASE EVENT DATE: 20240328
